FAERS Safety Report 6584275-9 (Version None)
Quarter: 2010Q1

REPORT INFORMATION
  Report Type: 
  Country: None (occurrence: None)
  Receive Date: 20100213
  Receipt Date: 20100213
  Transmission Date: 20100710
  Serious: No
  Sender: FDA-Public Use
  Company Number: None

PATIENT
  Sex: Female
  Weight: 58.0604 kg

DRUGS (1)
  1. CIPRO [Suspect]
     Indication: ESCHERICHIA URINARY TRACT INFECTION
     Dosage: 500MG 2 TIMES A DAY? PO
     Route: 048
     Dates: start: 20091028, end: 20091104

REACTIONS (23)
  - ABDOMINAL PAIN UPPER [None]
  - ANORECTAL DISORDER [None]
  - ARTHRALGIA [None]
  - ASTHENIA [None]
  - BACK PAIN [None]
  - BLOOD URINE PRESENT [None]
  - DEPRESSION [None]
  - DIARRHOEA [None]
  - DIZZINESS [None]
  - DYSPNOEA [None]
  - ESCHERICHIA INFECTION [None]
  - FEELING ABNORMAL [None]
  - HYPERSOMNIA [None]
  - IRRITABLE BOWEL SYNDROME [None]
  - JOINT CREPITATION [None]
  - MUSCULOSKELETAL PAIN [None]
  - PAIN [None]
  - PAIN IN JAW [None]
  - PYREXIA [None]
  - SUICIDAL IDEATION [None]
  - UNEVALUABLE EVENT [None]
  - URTICARIA [None]
  - UTERINE PROLAPSE [None]
